FAERS Safety Report 14360516 (Version 1)
Quarter: 2018Q1

REPORT INFORMATION
  Report Type: Spontaneous
  Country: SE (occurrence: SE)
  Receive Date: 20180106
  Receipt Date: 20180106
  Transmission Date: 20180509
  Serious: Yes (Hospitalization, Other)
  Sender: FDA-Public Use
  Company Number: SE-AMGEN-SWESP2018000078

PATIENT
  Age: 66 Year
  Sex: Female

DRUGS (1)
  1. XGEVA [Suspect]
     Active Substance: DENOSUMAB
     Indication: PROPHYLAXIS
     Dosage: UNK
     Route: 065
     Dates: start: 20170728

REACTIONS (16)
  - Asthenia [Recovering/Resolving]
  - Blindness [Unknown]
  - Muscle spasms [Recovering/Resolving]
  - Deafness [Unknown]
  - Seizure [Unknown]
  - Vision blurred [Unknown]
  - Musculoskeletal stiffness [Recovering/Resolving]
  - Feeling abnormal [Recovering/Resolving]
  - Head discomfort [Recovered/Resolved]
  - Headache [Recovered/Resolved]
  - Muscular weakness [Recovering/Resolving]
  - Mobility decreased [Recovering/Resolving]
  - Ear discomfort [Unknown]
  - Tremor [Recovering/Resolving]
  - Diplopia [Recovered/Resolved]
  - Dizziness [Unknown]

NARRATIVE: CASE EVENT DATE: 2017
